FAERS Safety Report 7217986-2 (Version None)
Quarter: 2011Q1

REPORT INFORMATION
  Report Type: 
  Country: None (occurrence: None)
  Receive Date: 20110110
  Receipt Date: 20101228
  Transmission Date: 20110831
  Serious: Yes (Life-Threatening, Hospitalization)
  Sender: FDA-Public Use
  Company Number: B0494707A

PATIENT
  Sex: Male

DRUGS (8)
  1. ZEFIX [Suspect]
     Indication: HEPATIC CIRRHOSIS
     Dosage: 100MG PER DAY
     Route: 048
     Dates: start: 20030119
  2. PRIMPERAN TAB [Concomitant]
     Indication: PROPHYLAXIS
     Route: 048
  3. SELBEX [Concomitant]
     Indication: PROPHYLAXIS
     Route: 048
  4. CRAVIT [Concomitant]
     Indication: PROPHYLAXIS
     Route: 048
  5. HEPSERA [Concomitant]
     Indication: HEPATIC CIRRHOSIS
     Dosage: 10MG PER DAY
     Route: 048
     Dates: start: 20050624
  6. GASTER [Concomitant]
     Route: 048
  7. AZUNOL [Concomitant]
     Indication: PROPHYLAXIS
     Route: 002
  8. RIBOFLAVIN TAB [Concomitant]
     Route: 048

REACTIONS (4)
  - ACUTE MYELOID LEUKAEMIA [None]
  - ANAEMIA [None]
  - PLATELET COUNT DECREASED [None]
  - BRONCHOPULMONARY ASPERGILLOSIS [None]
